FAERS Safety Report 7653018-X (Version None)
Quarter: 2011Q3

REPORT INFORMATION
  Report Type: 
  Country: None (occurrence: None)
  Receive Date: 20110722
  Receipt Date: 20110310
  Transmission Date: 20111222
  Serious: Yes (Hospitalization)
  Sender: FDA-Public Use
  Company Number: UTC-005660

PATIENT
  Age: 22 Year
  Sex: Male

DRUGS (4)
  1. REMODULIN [Suspect]
     Indication: PULMONARY ARTERIAL HYPERTENSION
     Dosage: 169.92 UG/KG (0.118 UG/KG, 1 IN 1 MIN), INTRAVENOUS
     Route: 042
     Dates: start: 20060809
  2. ADCIRCA [Concomitant]
  3. COUMADIN [Concomitant]
  4. LETAIRIS [Concomitant]

REACTIONS (2)
  - PNEUMONIA [None]
  - DEVICE RELATED INFECTION [None]
